FAERS Safety Report 25011123 (Version 1)
Quarter: 2025Q1

REPORT INFORMATION
  Report Type: Report from Study
  Country: US (occurrence: US)
  Receive Date: 20250226
  Receipt Date: 20250226
  Transmission Date: 20250409
  Serious: Yes (Other)
  Sender: ABBVIE
  Company Number: US-ABBVIE-6145038

PATIENT
  Age: 59 Year
  Sex: Male

DRUGS (1)
  1. HUMIRA [Suspect]
     Active Substance: ADALIMUMAB
     Indication: Colitis ulcerative
     Route: 058
     Dates: start: 201808, end: 202411

REACTIONS (5)
  - Foot operation [Unknown]
  - Foot fracture [Unknown]
  - Fall [Unknown]
  - Fractured coccyx [Unknown]
  - Spinal fracture [Unknown]

NARRATIVE: CASE EVENT DATE: 20241101
